FAERS Safety Report 5747442-X (Version None)
Quarter: 2008Q2

REPORT INFORMATION
  Report Type: 
  Country: None (occurrence: None)
  Receive Date: 20080523
  Receipt Date: 20080514
  Transmission Date: 20081010
  Serious: Yes (Other)
  Sender: FDA-Public Use
  Company Number: US-BAYER-200822986NA

PATIENT
  Sex: Female

DRUGS (1)
  1. AVELOX [Suspect]
     Indication: INFECTION
     Route: 048
     Dates: start: 20080510

REACTIONS (12)
  - ANAPHYLACTIC REACTION [None]
  - APHONIA [None]
  - DYSPNOEA [None]
  - ERYTHEMA [None]
  - EYE SWELLING [None]
  - HEART RATE INCREASED [None]
  - OEDEMA PERIPHERAL [None]
  - OXYGEN SATURATION DECREASED [None]
  - RASH MACULAR [None]
  - SPEECH DISORDER [None]
  - SWELLING FACE [None]
  - THROAT TIGHTNESS [None]
